FAERS Safety Report 10228982 (Version 1)
Quarter: 2014Q2

REPORT INFORMATION
  Report Type: Spontaneous
  Country: IT (occurrence: IT)
  Receive Date: 20140610
  Receipt Date: 20140610
  Transmission Date: 20141212
  Serious: Yes (Hospitalization)
  Sender: FDA-Public Use
  Company Number: IT-GLAXOSMITHKLINE-B1001768A

PATIENT
  Age: 68 Year
  Sex: Male

DRUGS (6)
  1. VOTRIENT [Suspect]
     Indication: PRODUCT USED FOR UNKNOWN INDICATION
     Dosage: 800MG PER DAY
     Route: 048
     Dates: start: 20131101, end: 20140503
  2. EUTIROX [Concomitant]
  3. LANSOX [Concomitant]
  4. CARDIOASPIRIN [Concomitant]
  5. BISOPROLOL HEMIFUMARATE [Concomitant]
  6. VALSARTAN [Concomitant]

REACTIONS (2)
  - Pancreatitis [Recovering/Resolving]
  - Pseudocyst [Recovering/Resolving]
